FAERS Safety Report 16924686 (Version 1)
Quarter: 2019Q4

REPORT INFORMATION
  Report Type: Spontaneous
  Country: US (occurrence: US)
  Receive Date: 20191016
  Receipt Date: 20191016
  Transmission Date: 20200122
  Serious: No
  Sender: FDA-Public Use
  Company Number: US-PFIZER INC-2019441702

PATIENT
  Age: 80 Year

DRUGS (13)
  1. MORPHINE SULFATE. [Suspect]
     Active Substance: MORPHINE SULFATE
     Dosage: UNK
  2. BENICAR [Suspect]
     Active Substance: OLMESARTAN MEDOXOMIL
     Dosage: UNK
  3. CODEINE [Suspect]
     Active Substance: CODEINE
     Dosage: UNK
  4. LESCOL [Suspect]
     Active Substance: FLUVASTATIN SODIUM
     Dosage: UNK
  5. ANTARA [Suspect]
     Active Substance: FENOFIBRATE
     Dosage: UNK
  6. ARIMIDEX [Suspect]
     Active Substance: ANASTROZOLE
     Dosage: UNK
  7. LISINOPRIL. [Suspect]
     Active Substance: LISINOPRIL
     Dosage: UNK
  8. NIASPAN [Suspect]
     Active Substance: NIACIN
     Dosage: UNK
  9. ZETIA [Suspect]
     Active Substance: EZETIMIBE
     Dosage: UNK
  10. TRAMADOL HCL [Suspect]
     Active Substance: TRAMADOL HYDROCHLORIDE
     Dosage: UNK
  11. PERCOCET [Suspect]
     Active Substance: ACETAMINOPHEN\OXYCODONE HYDROCHLORIDE
     Dosage: UNK
  12. LIPITOR [Suspect]
     Active Substance: ATORVASTATIN CALCIUM
     Dosage: UNK
  13. PRAVACHOL [Suspect]
     Active Substance: PRAVASTATIN SODIUM
     Dosage: UNK

REACTIONS (1)
  - Drug hypersensitivity [Unknown]
